FAERS Safety Report 17846928 (Version 1)
Quarter: 2020Q2

REPORT INFORMATION
  Report Type: Spontaneous
  Country: FR (occurrence: FR)
  Receive Date: 20200601
  Receipt Date: 20200601
  Transmission Date: 20200714
  Serious: Yes (Hospitalization)
  Sender: FDA-Public Use
  Company Number: NVSC2020FR150657

PATIENT
  Age: 30 Year
  Sex: Male

DRUGS (1)
  1. AMIODARONE [Suspect]
     Active Substance: AMIODARONE
     Indication: SUICIDE ATTEMPT
     Dosage: 10800 MG, QD
     Route: 048
     Dates: start: 20120716, end: 20120716

REACTIONS (4)
  - Atrioventricular block complete [Recovered/Resolved]
  - Hypotension [Recovered/Resolved]
  - Disturbance in attention [Recovered/Resolved]
  - Metabolic disorder [Recovered/Resolved]

NARRATIVE: CASE EVENT DATE: 20120716
